FAERS Safety Report 23294477 (Version 1)
Quarter: 2023Q4

REPORT INFORMATION
  Report Type: Report from Study
  Country: US (occurrence: US)
  Receive Date: 20231213
  Receipt Date: 20231213
  Transmission Date: 20240110
  Serious: Yes (Hospitalization, Other)
  Sender: FDA-Public Use
  Company Number: US-ABBVIE-5535919

PATIENT
  Sex: Male

DRUGS (3)
  1. VENCLEXTA [Suspect]
     Active Substance: VENETOCLAX
     Indication: Myelodysplastic syndrome
     Dosage: TOOK 1 TABLET BY MOUTH ON DAY 1 WITH FOOD AND FULL GLASS OF WATER?FORM STRENGTH WAS 100 MILLIGRAM
     Route: 048
  2. VENCLEXTA [Suspect]
     Active Substance: VENETOCLAX
     Indication: Myelodysplastic syndrome
     Dosage: TOOK 2 TABLETS ON DAY 2 WITH FOOD AND FULL GLASS OF WATER?FORM STRENGTH WAS 100 MILLIGRAM
     Route: 048
  3. VENCLEXTA [Suspect]
     Active Substance: VENETOCLAX
     Indication: Myelodysplastic syndrome
     Dosage: THEN TOOK 4 TABLETS ONCE DAILY THEREAFTER WITH FOOD AND FULL GLASS OF WATER?FORM STRENGTH WAS 100...
     Route: 048

REACTIONS (1)
  - Internal haemorrhage [Recovered/Resolved]
